FAERS Safety Report 11033869 (Version 4)
Quarter: 2016Q3

REPORT INFORMATION
  Report Type: Spontaneous
  Country: US (occurrence: US)
  Receive Date: 20150415
  Receipt Date: 20160912
  Transmission Date: 20161109
  Serious: Yes (Hospitalization)
  Sender: FDA-Public Use
  Company Number: US-JNJFOC-20150118871

PATIENT
  Age: 65 Year
  Sex: Female

DRUGS (6)
  1. XARELTO [Suspect]
     Active Substance: RIVAROXABAN
     Indication: PULMONARY EMBOLISM
     Dosage: 10MG - 20MG (NOT SURE OF??EXACT DOSAGE)
     Route: 048
     Dates: start: 20140103, end: 20141024
  2. XARELTO [Suspect]
     Active Substance: RIVAROXABAN
     Indication: ANTICOAGULANT THERAPY
     Dosage: 10MG - 20MG (NOT SURE OF??EXACT DOSAGE)
     Route: 048
     Dates: start: 20140103, end: 20141024
  3. XARELTO [Suspect]
     Active Substance: RIVAROXABAN
     Indication: PULMONARY EMBOLISM
     Dosage: 10MG - 20MG (NOT SURE OF??EXACT DOSAGE)
     Route: 048
     Dates: start: 2014, end: 20141106
  4. XARELTO [Suspect]
     Active Substance: RIVAROXABAN
     Indication: ANTICOAGULANT THERAPY
     Dosage: 10MG - 20MG (NOT SURE OF??EXACT DOSAGE)
     Route: 048
     Dates: start: 2014, end: 20141106
  5. XARELTO [Suspect]
     Active Substance: RIVAROXABAN
     Indication: DEEP VEIN THROMBOSIS
     Dosage: 10MG - 20MG (NOT SURE OF??EXACT DOSAGE)
     Route: 048
     Dates: start: 2014, end: 20141106
  6. XARELTO [Suspect]
     Active Substance: RIVAROXABAN
     Indication: DEEP VEIN THROMBOSIS
     Dosage: 10MG - 20MG (NOT SURE OF??EXACT DOSAGE)
     Route: 048
     Dates: start: 20140103, end: 20141024

REACTIONS (1)
  - Gastrointestinal haemorrhage [Recovered/Resolved]

NARRATIVE: CASE EVENT DATE: 20141021
